FAERS Safety Report 15333386 (Version 1)
Quarter: 2018Q3

REPORT INFORMATION
  Report Type: Report from Study
  Country: CO (occurrence: CO)
  Receive Date: 20180830
  Receipt Date: 20180830
  Transmission Date: 20181010
  Serious: Yes (Other)
  Sender: FDA-Public Use
  Company Number: CO-ASTELLAS-2018US038313

PATIENT
  Sex: Female

DRUGS (3)
  1. TACROLIMUS. [Suspect]
     Active Substance: TACROLIMUS
     Indication: RENAL TRANSPLANT
     Dosage: ONE DAY TAKING 4 MG AND TWO DAY TAKING 5 MG
     Route: 048
     Dates: start: 20120523
  2. MYCOPHENOLATE [Concomitant]
     Active Substance: MYCOPHENOLIC ACID
     Indication: TRANSPLANT
     Route: 048
     Dates: start: 20120523
  3. TACROLIMUS. [Suspect]
     Active Substance: TACROLIMUS
     Indication: RENAL TRANSPLANT
     Dosage: ONE DAY TAKING 4 MG AND TWO DAY TAKING 5 MG
     Route: 048
     Dates: start: 20120523

REACTIONS (6)
  - Burning sensation [Unknown]
  - Tooth fracture [Not Recovered/Not Resolved]
  - Contusion [Unknown]
  - Venous occlusion [Unknown]
  - Alopecia [Not Recovered/Not Resolved]
  - Laceration [Recovering/Resolving]

NARRATIVE: CASE EVENT DATE: 2018
